FAERS Safety Report 6596020-1 (Version None)
Quarter: 2010Q1

REPORT INFORMATION
  Report Type: 
  Country: None (occurrence: None)
  Receive Date: 20100219
  Receipt Date: 20100219
  Transmission Date: 20100710
  Serious: No
  Sender: FDA-Public Use
  Company Number: None

PATIENT
  Age: 53 Year
  Sex: Male

DRUGS (1)
  1. LISINOPRIL [Suspect]
     Indication: HYPERTENSION
     Dosage: 40
     Dates: start: 20090909, end: 20091009

REACTIONS (5)
  - ANGIOEDEMA [None]
  - CHEST PAIN [None]
  - DYSPNOEA [None]
  - EMOTIONAL DISTRESS [None]
  - FLATULENCE [None]
